FAERS Safety Report 8554603 (Version 4)
Quarter: 2013Q1

REPORT INFORMATION
  Report Type: Report from Study
  Country: TH (occurrence: TH)
  Receive Date: 20120509
  Receipt Date: 20130115
  Transmission Date: 20140127
  Serious: Yes (Hospitalization)
  Sender: FDA-Public Use
  Company Number: TH-ROCHE-1066491

PATIENT
  Age: 34 Year
  Sex: Male
  Weight: 64.1 kg

DRUGS (5)
  1. PEG-INTERFERON ALFA 2A [Suspect]
     Indication: HEPATITIS C
     Route: 058
     Dates: start: 20110921, end: 20120208
  2. RIBAVIRIN [Suspect]
     Indication: HEPATITIS C
     Route: 048
     Dates: start: 20110921, end: 20120221
  3. RIBAVIRIN [Suspect]
     Route: 048
     Dates: start: 20120115, end: 20120221
  4. ALISPORIVIR [Suspect]
     Indication: HEPATITIS C
     Route: 048
     Dates: start: 20110921, end: 20110921
  5. ALISPORIVIR [Suspect]
     Route: 048
     Dates: start: 20120115, end: 20120221

REACTIONS (3)
  - Hyperthyroidism [Recovered/Resolved]
  - Hyponatraemia [Recovered/Resolved]
  - Pituitary tumour benign [Unknown]
